FAERS Safety Report 11888411 (Version 1)
Quarter: 2016Q1

REPORT INFORMATION
  Report Type: Spontaneous
  Country: PH (occurrence: PH)
  Receive Date: 20160105
  Receipt Date: 20160105
  Transmission Date: 20160526
  Serious: Yes (Hospitalization, Other)
  Sender: FDA-Public Use
  Company Number: PH-009507513-1601PHL000525

PATIENT
  Age: 60 Year
  Sex: Male

DRUGS (2)
  1. JANUVIA [Suspect]
     Active Substance: SITAGLIPTIN PHOSPHATE
     Indication: DIABETES MELLITUS
     Dosage: 50 MG, ONE TABLET ONCE A DAY
     Route: 048
     Dates: start: 2011
  2. NOVOMIX [Concomitant]
     Active Substance: INSULIN ASPART
     Dosage: 20 UNITS MORNING, 20 UNITS NOONTIME AND 25 UNITS EVENING

REACTIONS (2)
  - Dialysis [Recovered/Resolved]
  - Renal transplant [Recovered/Resolved]

NARRATIVE: CASE EVENT DATE: 2013
